FAERS Safety Report 19055597 (Version 1)
Quarter: 2021Q1

REPORT INFORMATION
  Report Type: Spontaneous
  Country: US (occurrence: US)
  Receive Date: 20210324
  Receipt Date: 20210324
  Transmission Date: 20210420
  Serious: No
  Sender: FDA-Public Use
  Company Number: None

PATIENT
  Age: 46 Year
  Sex: Female
  Weight: 68.85 kg

DRUGS (6)
  1. BUSPAR 20MG [Concomitant]
  2. DAILY MULTIVITAMIN [Concomitant]
     Active Substance: VITAMINS
  3. MAGNESIUM SUPPLEMENT [Concomitant]
     Active Substance: MAGNESIUM
  4. B?12 SUPPLEMENT [Concomitant]
  5. EMGALITY [Suspect]
     Active Substance: GALCANEZUMAB-GNLM
     Indication: MIGRAINE
     Dosage: ?          QUANTITY:1 INJECTION(S);OTHER FREQUENCY:MONTHLY;?
     Route: 058
     Dates: start: 20201101, end: 20210305
  6. AMERGE 3.5MG PRN [Concomitant]

REACTIONS (1)
  - Weight increased [None]

NARRATIVE: CASE EVENT DATE: 20210323
